FAERS Safety Report 7939994-6 (Version None)
Quarter: 2011Q4

REPORT INFORMATION
  Report Type: 
  Country: None (occurrence: None)
  Receive Date: 20111125
  Receipt Date: 20111123
  Transmission Date: 20120403
  Serious: No
  Sender: FDA-Public Use
  Company Number: US-PFIZER INC-2011287155

PATIENT
  Sex: Male
  Weight: 84 kg

DRUGS (4)
  1. ZOSYN [Suspect]
     Indication: PNEUMONIA
     Dosage: 3.375 G, 2X/DAY
     Dates: start: 20111121
  2. EPOGEN [Concomitant]
     Indication: NEPHROPATHY
     Dosage: UNK
  3. LISINOPRIL [Concomitant]
     Indication: HYPERTENSION
     Dosage: UNK
  4. PROTONIX [Concomitant]
     Indication: ABDOMINAL DISCOMFORT
     Dosage: UNK

REACTIONS (3)
  - EXTRAVASATION [None]
  - BLOOD CREATININE INCREASED [None]
  - WHITE BLOOD CELL COUNT INCREASED [None]
